FAERS Safety Report 9432426 (Version 1)
Quarter: 2013Q3

REPORT INFORMATION
  Report Type: Spontaneous
  Country: US (occurrence: US)
  Receive Date: 20130731
  Receipt Date: 20130731
  Transmission Date: 20140515
  Serious: Yes (Hospitalization)
  Sender: FDA-Public Use
  Company Number: US-PFIZER INC-2013218626

PATIENT
  Sex: Male

DRUGS (1)
  1. PREMARIN [Suspect]
     Dosage: UNK, SINGLE
     Route: 048
     Dates: start: 201307, end: 201307

REACTIONS (5)
  - Accidental exposure to product [Unknown]
  - Malaise [Unknown]
  - Asthenia [Unknown]
  - Mental disorder [Unknown]
  - Dizziness [Unknown]
